FAERS Safety Report 5146211-1 (Version None)
Quarter: 2006Q4

REPORT INFORMATION
  Report Type: 
  Country: None (occurrence: None)
  Receive Date: 20061108
  Receipt Date: 20061013
  Transmission Date: 20070319
  Serious: Yes (Death)
  Sender: FDA-Public Use
  Company Number: JP-BRISTOL-MYERS SQUIBB COMPANY-13543277

PATIENT
  Age: 63 Year
  Sex: Male

DRUGS (4)
  1. VEPESID [Suspect]
     Indication: LYMPHOMA
     Route: 042
     Dates: start: 20000101, end: 20000101
  2. PARAPLATIN [Suspect]
     Indication: LYMPHOMA
     Route: 042
     Dates: start: 20000101, end: 20000101
  3. RITUXIMAB [Concomitant]
  4. SULFASALAZINE [Concomitant]
     Indication: COLITIS ULCERATIVE
     Route: 048

REACTIONS (1)
  - LYMPHOPROLIFERATIVE DISORDER [None]
